FAERS Safety Report 20501962 (Version 1)
Quarter: 2022Q1

REPORT INFORMATION
  Report Type: Spontaneous
  Country: US (occurrence: US)
  Receive Date: 20220222
  Receipt Date: 20220222
  Transmission Date: 20220424
  Serious: No
  Sender: FDA-Public Use
  Company Number: US-INCYTE CORPORATION-2022IN001499

PATIENT

DRUGS (1)
  1. JAKAFI [Suspect]
     Active Substance: RUXOLITINIB
     Indication: Myeloproliferative neoplasm
     Dosage: 5 MILLIGRAM, BID
     Route: 048
     Dates: start: 202201

REACTIONS (2)
  - Myalgia [Unknown]
  - Off label use [Unknown]

NARRATIVE: CASE EVENT DATE: 20220101
